FAERS Safety Report 21898703 (Version 1)
Quarter: 2023Q1

REPORT INFORMATION
  Report Type: Report from Study
  Country: IE (occurrence: IE)
  Receive Date: 20230123
  Receipt Date: 20230123
  Transmission Date: 20230417
  Serious: Yes (Other)
  Sender: FDA-Public Use
  Company Number: IE-Merck Healthcare KGaA-9377958

PATIENT
  Sex: Female

DRUGS (3)
  1. TEPOTINIB [Suspect]
     Active Substance: TEPOTINIB
     Indication: Lung neoplasm malignant
     Dates: start: 202208
  2. TEPOTINIB [Suspect]
     Active Substance: TEPOTINIB
  3. TEPOTINIB [Suspect]
     Active Substance: TEPOTINIB
     Dates: start: 20221201

REACTIONS (2)
  - Thrombocytopenia [Not Recovered/Not Resolved]
  - Haemoptysis [Not Recovered/Not Resolved]
